FAERS Safety Report 6846382-2 (Version None)
Quarter: 2010Q3

REPORT INFORMATION
  Report Type: 
  Country: None (occurrence: None)
  Receive Date: 20100715
  Receipt Date: 20070918
  Transmission Date: 20110219
  Serious: No
  Sender: FDA-Public Use
  Company Number: US-PFIZER INC-2007078111

PATIENT
  Sex: Female
  Weight: 78.181 kg

DRUGS (7)
  1. CHANTIX [Suspect]
     Dates: start: 20070910, end: 20070915
  2. IBANDRONATE SODIUM [Suspect]
     Indication: OSTEOPOROSIS
     Dates: start: 20070401
  3. MICARDIS [Concomitant]
  4. NORVASC [Concomitant]
  5. ZOCOR [Concomitant]
  6. ACIPHEX [Concomitant]
  7. ACETYLSALICYLIC ACID [Concomitant]

REACTIONS (1)
  - PRURITUS [None]
